FAERS Safety Report 13289002 (Version 2)
Quarter: 2017Q2

REPORT INFORMATION
  Report Type: Spontaneous
  Country: US (occurrence: US)
  Receive Date: 20170302
  Receipt Date: 20170418
  Transmission Date: 20170830
  Serious: Yes (Other)
  Sender: FDA-Public Use
  Company Number: US-BIOGEN-2017BI00365712

PATIENT
  Sex: Female
  Weight: 69.92 kg

DRUGS (1)
  1. AVONEX [Suspect]
     Active Substance: INTERFERON BETA-1A
     Indication: MULTIPLE SCLEROSIS
     Route: 065
     Dates: start: 2003, end: 2015

REACTIONS (1)
  - Breast mass [Recovered/Resolved]

NARRATIVE: CASE EVENT DATE: 2009
